FAERS Safety Report 6684267-5 (Version None)
Quarter: 2010Q2

REPORT INFORMATION
  Report Type: 
  Country: None (occurrence: None)
  Receive Date: 20100416
  Receipt Date: 20100407
  Transmission Date: 20101027
  Serious: Yes (Other)
  Sender: FDA-Public Use
  Company Number: US-PFIZER INC-2010044782

PATIENT
  Sex: Male
  Weight: 97.506 kg

DRUGS (8)
  1. LIPITOR [Suspect]
     Indication: BLOOD CHOLESTEROL INCREASED
     Dosage: 20 MG, DAILY
     Route: 048
     Dates: start: 20050101
  2. LISINOPRIL [Concomitant]
     Dosage: UNK
  3. BUPROPION [Concomitant]
     Dosage: TWO TABLETS DAILY
  4. CITALOPRAM [Concomitant]
     Dosage: UNK
  5. CENTRUM [Concomitant]
     Dosage: UNK
  6. VITAMIN C [Concomitant]
     Dosage: 500 MG, UNK
  7. ACETYLSALICYLIC ACID [Concomitant]
     Dosage: 325 MG, UNK
  8. ATENOLOL [Concomitant]
     Dosage: UNK

REACTIONS (1)
  - DIABETES MELLITUS [None]
